FAERS Safety Report 22654853 (Version 1)
Quarter: 2023Q2

REPORT INFORMATION
  Report Type: Spontaneous
  Country: FI (occurrence: FI)
  Receive Date: 20230629
  Receipt Date: 20230629
  Transmission Date: 20230721
  Serious: Yes (Hospitalization)
  Sender: FDA-Public Use
  Company Number: FI-BIOVITRUM-2023-FI-012361

PATIENT
  Age: 32 Year
  Sex: Female

DRUGS (1)
  1. KINERET [Suspect]
     Active Substance: ANAKINRA
     Indication: Familial mediterranean fever
     Dosage: AS NEEDED

REACTIONS (2)
  - Cardiac disorder [Unknown]
  - Maternal exposure during pregnancy [Not Recovered/Not Resolved]
